FAERS Safety Report 5931368-2 (Version None)
Quarter: 2008Q4

REPORT INFORMATION
  Report Type: 
  Country: None (occurrence: None)
  Receive Date: 20081027
  Receipt Date: 20081017
  Transmission Date: 20090506
  Serious: Yes (Death)
  Sender: FDA-Public Use
  Company Number: CH-ROCHE-592428

PATIENT
  Age: 54 Year
  Sex: Male

DRUGS (5)
  1. RIVOTRIL [Suspect]
     Indication: DRUG USE FOR UNKNOWN INDICATION
     Route: 048
     Dates: end: 20080121
  2. METHADONE HCL [Suspect]
     Route: 048
     Dates: start: 20000101, end: 20080121
  3. CITALOPRAM HYDROBROMIDE [Suspect]
     Route: 048
     Dates: end: 20080121
  4. ENTUMIN [Suspect]
     Route: 048
     Dates: end: 20080121
  5. ANTABUSE [Concomitant]
     Dates: start: 20000101, end: 20071201

REACTIONS (1)
  - DEATH [None]
